FAERS Safety Report 7185150-1 (Version None)
Quarter: 2010Q4

REPORT INFORMATION
  Report Type: 
  Country: None (occurrence: None)
  Receive Date: 20101222
  Receipt Date: 20101213
  Transmission Date: 20110411
  Serious: Yes (Other)
  Sender: FDA-Public Use
  Company Number: US-JNJFOC-20101205502

PATIENT
  Sex: Female
  Weight: 90.27 kg

DRUGS (7)
  1. REMICADE [Suspect]
     Indication: RHEUMATOID ARTHRITIS
     Route: 042
  2. PAXIL [Concomitant]
     Indication: DEPRESSION
     Route: 048
  3. PREDNISONE [Concomitant]
     Indication: RHEUMATOID ARTHRITIS
     Route: 048
  4. PREVACID [Concomitant]
     Indication: GASTROOESOPHAGEAL REFLUX DISEASE
     Route: 048
  5. CELEBREX [Concomitant]
     Indication: RHEUMATOID ARTHRITIS
     Route: 048
  6. ARAVA [Concomitant]
     Indication: RHEUMATOID ARTHRITIS
     Route: 048
  7. IRON [Concomitant]
     Indication: BLOOD IRON DECREASED
     Route: 048

REACTIONS (4)
  - BLOOD PRESSURE INCREASED [None]
  - RASH ERYTHEMATOUS [None]
  - THROAT TIGHTNESS [None]
  - VOMITING [None]
